FAERS Safety Report 6501150-6 (Version None)
Quarter: 2009Q4

REPORT INFORMATION
  Report Type: 
  Country: None (occurrence: None)
  Receive Date: 20091216
  Receipt Date: 20090817
  Transmission Date: 20100525
  Serious: No
  Sender: FDA-Public Use
  Company Number: A0803175A

PATIENT
  Age: 50 Year
  Sex: Female

DRUGS (1)
  1. COMMIT [Suspect]
     Dates: start: 20090817

REACTIONS (2)
  - DEPRESSED MOOD [None]
  - DISSOCIATION [None]
